FAERS Safety Report 4426324-X (Version None)
Quarter: 2004Q3

REPORT INFORMATION
  Report Type: 
  Country: None (occurrence: None)
  Receive Date: 20040811
  Receipt Date: 20040324
  Transmission Date: 20050211
  Serious: Yes (Life-Threatening, Hospitalization, Other)
  Sender: FDA-Public Use
  Company Number: 2002-04928

PATIENT
  Age: 38 Year
  Sex: Female
  Weight: 55.3 kg

DRUGS (18)
  1. TENOFOVIR DF (TENOFOVIR DISOPROXIL FUMARATE) [Suspect]
     Indication: HIV INFECTION
     Dosage: 300 MG, ONCE A DAY, ORAL
     Route: 048
     Dates: start: 20020530, end: 20020913
  2. TENOFOVIR DF (TENOFOVIR DISOPROXIL FUMARATE) [Suspect]
     Indication: HIV INFECTION
     Dosage: 300 MG, ONCE A DAY, ORAL
     Route: 048
     Dates: start: 20020923, end: 20021001
  3. DDI (DIDANOSINE) [Concomitant]
  4. D4T (STAVUDINE) [Concomitant]
  5. KALETRA [Concomitant]
  6. EFAVIRENZ [Concomitant]
  7. LAMIVUDINE [Concomitant]
  8. LIPIDIL [Concomitant]
  9. NEUPOGEN [Concomitant]
  10. WARFARIN SODIUM [Concomitant]
  11. COVERSYL (PERINDOPRIL) [Concomitant]
  12. NOVOLIN 70/30(HUMAN MIXTARD) [Concomitant]
  13. FLUCONAZOLE [Concomitant]
  14. SEPTRA DS [Concomitant]
  15. CLINDAMYCIN [Concomitant]
  16. DARAPRIM [Concomitant]
  17. DARAPRIM [Concomitant]
  18. FOLINIC ACID [Concomitant]

REACTIONS (5)
  - ATELECTASIS [None]
  - DIZZINESS [None]
  - HYPERKALAEMIA [None]
  - PANCREATITIS [None]
  - RENAL FAILURE [None]
